FAERS Safety Report 4942088-5 (Version None)
Quarter: 2006Q1

REPORT INFORMATION
  Report Type: 
  Country: None (occurrence: None)
  Receive Date: 20060313
  Receipt Date: 20050603
  Transmission Date: 20060701
  Serious: No
  Sender: FDA-Public Use
  Company Number: US-GLAXOSMITHKLINE-A0561065A

PATIENT
  Age: 49 Year

DRUGS (5)
  1. NICORETTE (MINT) [Suspect]
     Indication: ANXIETY
  2. NATURE-MADE MULTIVITAMIN [Concomitant]
  3. VITAMIN B COMPLEX CAP [Concomitant]
  4. ANTIHISTAMINE [Concomitant]
  5. H2 BLOCKER [Concomitant]

REACTIONS (3)
  - FEELING OF RELAXATION [None]
  - GINGIVAL DISCOLOURATION [None]
  - GINGIVAL PAIN [None]
